FAERS Safety Report 9777611 (Version 6)
Quarter: 2021Q3

REPORT INFORMATION
  Report Type: Spontaneous
  Country: NO (occurrence: NO)
  Receive Date: 20131222
  Receipt Date: 20210830
  Transmission Date: 20211014
  Serious: Yes (Death, Hospitalization, Other)
  Sender: FDA-Public Use
  Company Number: NO-TEVA-450940ISR

PATIENT
  Age: 17 Year
  Sex: Female

DRUGS (11)
  1. CISPLATIN. [Concomitant]
     Active Substance: CISPLATIN
     Indication: OSTEOSARCOMA METASTATIC
  2. IFOSFAMIDE. [Concomitant]
     Active Substance: IFOSFAMIDE
     Dosage: 6 G/M2 AT WEEK 41
     Route: 065
  3. CISPLATIN. [Concomitant]
     Active Substance: CISPLATIN
     Indication: METASTASES TO LUNG
  4. DOXORUBICIN [Concomitant]
     Active Substance: DOXORUBICIN
     Indication: BONE SARCOMA
  5. METHOTREXATE SODIUM. [Suspect]
     Active Substance: METHOTREXATE SODIUM
     Indication: METASTASES TO LUNG
     Dosage: DAILY DOSE: 12G/M 3 PER ADMINISTRATION AT WEEKS 4 AND 5
     Route: 064
  6. IFOSFAMIDE. [Concomitant]
     Active Substance: IFOSFAMIDE
     Dosage: 9 G/M2 AT WEEKS 15 AND 26
     Route: 065
  7. CISPLATIN. [Concomitant]
     Active Substance: CISPLATIN
     Indication: BONE SARCOMA
     Dosage: 120 MG/M2 DAILY; ON WEEKS 1,9,19,31 AND 41
     Route: 065
  8. DOXORUBICIN [Concomitant]
     Active Substance: DOXORUBICIN
     Indication: OSTEOSARCOMA METASTATIC
  9. ETOPOSIDE. [Concomitant]
     Active Substance: ETOPOSIDE
     Indication: OSTEOSARCOMA METASTATIC
     Dosage: 500 MG/M2 DAILY; AT WEEKS 12, 23, 29 AND 37
     Route: 065
  10. IFOSFAMIDE. [Concomitant]
     Active Substance: IFOSFAMIDE
     Indication: OSTEOSARCOMA METASTATIC
     Dosage: 14 G/M2 AT WEEKS 12,23,29 AND 37
     Route: 065
  11. DOXORUBICIN [Concomitant]
     Active Substance: DOXORUBICIN
     Indication: METASTASES TO LUNG
     Dosage: 75 MG/M2 DAILY; AT WEEKS 1,9,15,19,26 AND 33
     Route: 065

REACTIONS (6)
  - Pulmonary toxicity [Fatal]
  - Thrombocytopenia [Unknown]
  - Pneumonitis [Fatal]
  - Rash [Unknown]
  - Radiation pneumonitis [Fatal]
  - Febrile neutropenia [Unknown]
